FAERS Safety Report 4972660-8 (Version None)
Quarter: 2006Q1

REPORT INFORMATION
  Report Type: 
  Country: None (occurrence: None)
  Receive Date: 20060216
  Receipt Date: 20050831
  Transmission Date: 20060701
  Serious: Yes (Hospitalization)
  Sender: FDA-Public Use
  Company Number: 200509IM000476

PATIENT
  Age: 68 Year
  Sex: Male
  Weight: 117.4816 kg

DRUGS (20)
  1. INTERFERON GAMMA-1B [Suspect]
     Indication: IDIOPATHIC PULMONARY FIBROSIS
     Dosage: 100 UG, TIW, SUBCUTANEOUS; 200 UG, TIW, SUBCUTANEOUS
     Route: 058
     Dates: start: 20031124, end: 20031205
  2. INTERFERON GAMMA-1B [Suspect]
     Indication: IDIOPATHIC PULMONARY FIBROSIS
     Dosage: 100 UG, TIW, SUBCUTANEOUS; 200 UG, TIW, SUBCUTANEOUS
     Route: 058
     Dates: start: 20031208
  3. PREDNISONE TAB [Concomitant]
  4. FUROSEMIDE [Concomitant]
  5. QUININE SULFATE [Concomitant]
  6. ACCUPRIL [Concomitant]
  7. ASPIRIN [Concomitant]
  8. IMODIUM [Concomitant]
  9. LIPITOR [Concomitant]
  10. EFFEXOR [Concomitant]
  11. BACTRIM [Concomitant]
  12. INSPRA [Concomitant]
  13. NEURONTIN [Concomitant]
  14. ACETAMINOPHEN [Concomitant]
  15. ADVAIR DISKUS 100/50 [Concomitant]
  16. VICODIN [Concomitant]
  17. MUCINEX DM 30-600 MG [Concomitant]
  18. XANAX [Concomitant]
  19. OXYGEN [Concomitant]
  20. MULTI-VITAMIN [Concomitant]

REACTIONS (1)
  - PNEUMONIA [None]
